FAERS Safety Report 5036150-9 (Version None)
Quarter: 2006Q2

REPORT INFORMATION
  Report Type: 
  Country: None (occurrence: None)
  Receive Date: 20060531
  Receipt Date: 20060407
  Transmission Date: 20061013
  Serious: No
  Sender: FDA-Public Use
  Company Number: PHEH2006US02766

PATIENT
  Age: 78 Year
  Sex: Male

DRUGS (3)
  1. EXJADE [Suspect]
     Indication: BLOOD IRON INCREASED
     Dosage: 1500 MG QD ORAL
     Route: 048
     Dates: start: 20060208, end: 20060214
  2. PROTONIX [Concomitant]
  3. REVLIMID [Concomitant]

REACTIONS (2)
  - BONE PAIN [None]
  - MYALGIA [None]
